FAERS Safety Report 10154039 (Version 1)
Quarter: 2014Q2

REPORT INFORMATION
  Report Type: Spontaneous
  Country: US (occurrence: None)
  Receive Date: 20140505
  Receipt Date: 20140505
  Transmission Date: 20141212
  Serious: Yes (Hospitalization)
  Sender: FDA-Public Use
  Company Number: None

PATIENT
  Age: 86 Year
  Sex: Male
  Weight: 60 kg

DRUGS (1)
  1. ISONIAZID [Suspect]
     Indication: TUBERCULOSIS
     Dates: start: 20140220, end: 20140226

REACTIONS (5)
  - Pruritus [None]
  - Renal failure acute [None]
  - Vasculitis [None]
  - Dialysis [None]
  - Rash [None]
